FAERS Safety Report 9530682 (Version 2)
Quarter: 2013Q4

REPORT INFORMATION
  Report Type: Report from Study
  Country: AR (occurrence: AR)
  Receive Date: 20130918
  Receipt Date: 20131211
  Transmission Date: 20140711
  Serious: Yes (Other)
  Sender: FDA-Public Use
  Company Number: AR-ROCHE-1276390

PATIENT
  Age: 77 Year
  Sex: Female

DRUGS (4)
  1. RANIBIZUMAB [Suspect]
     Indication: MACULOPATHY
     Dosage: IN LEFT EYE
     Route: 050
     Dates: start: 201308
  2. RANIBIZUMAB [Suspect]
     Dosage: IN LEFT EYE
     Route: 050
     Dates: start: 201309
  3. RANIBIZUMAB [Suspect]
     Dosage: IN LEFT EYE
     Route: 050
     Dates: start: 201310
  4. DIOVAN [Suspect]
     Indication: HYPERTENSION
     Route: 065

REACTIONS (2)
  - Maculopathy [Not Recovered/Not Resolved]
  - Visual acuity reduced [Unknown]
